FAERS Safety Report 7400634-6 (Version None)
Quarter: 2011Q1

REPORT INFORMATION
  Report Type: 
  Country: None (occurrence: None)
  Receive Date: 20110329
  Receipt Date: 20110315
  Transmission Date: 20110831
  Serious: Yes (Hospitalization)
  Sender: FDA-Public Use
  Company Number: 029341

PATIENT
  Sex: Male

DRUGS (1)
  1. CIMZIA [Suspect]
     Indication: CROHN'S DISEASE
     Dosage: FROM: LYO , SUBCUTANEOUS
     Route: 058
     Dates: start: 20090609

REACTIONS (1)
  - DEVICE RELATED INFECTION [None]
